FAERS Safety Report 9426807 (Version 1)
Quarter: 2013Q3

REPORT INFORMATION
  Report Type: Spontaneous
  Country: US (occurrence: US)
  Receive Date: 20130730
  Receipt Date: 20130730
  Transmission Date: 20140515
  Serious: Yes (Other)
  Sender: FDA-Public Use
  Company Number: US-SANOFI-AVENTIS-2013SA030738

PATIENT
  Age: 58 Year
  Sex: Male
  Weight: 90.71 kg

DRUGS (2)
  1. ZOLPIDEM TARTRATE [Suspect]
     Indication: SLEEP DISORDER
     Dosage: PRODUCT START AND END DATE:- 6-7 YEAR AGO.
  2. ALCOHOL [Concomitant]

REACTIONS (3)
  - Suicide attempt [Recovered/Resolved]
  - Feeling abnormal [Unknown]
  - Intentional overdose [Unknown]
